FAERS Safety Report 11052369 (Version 1)
Quarter: 2015Q2

REPORT INFORMATION
  Report Type: Spontaneous
  Country: ES (occurrence: ES)
  Receive Date: 20150421
  Receipt Date: 20150421
  Transmission Date: 20150821
  Serious: Yes (Other)
  Sender: FDA-Public Use
  Company Number: PHHY2015ES046248

PATIENT
  Age: 86 Year
  Sex: Male

DRUGS (4)
  1. ULUNAR BREEZHALER [Suspect]
     Active Substance: GLYCOPYRROLATE\INDACATEROL MALEATE
     Indication: CHRONIC OBSTRUCTIVE PULMONARY DISEASE
     Dosage: 1 DF, QD
     Route: 055
     Dates: start: 20150219, end: 201502
  2. SINTROM [Concomitant]
     Active Substance: ACENOCOUMAROL
     Indication: CARDIAC DISORDER
     Route: 065
  3. DILTIAZEM [Concomitant]
     Active Substance: DILTIAZEM
     Indication: HYPERTENSION
     Route: 065
  4. DILTIAZEM [Concomitant]
     Active Substance: DILTIAZEM
     Indication: CARDIAC DISORDER

REACTIONS (5)
  - Erythema [Recovered/Resolved]
  - Oral mucosal erythema [Recovered/Resolved]
  - Angioedema [Recovered/Resolved]
  - Oral pain [Recovered/Resolved]
  - Tongue discolouration [Recovered/Resolved]

NARRATIVE: CASE EVENT DATE: 20150220
